FAERS Safety Report 22111085 (Version 1)
Quarter: 2023Q1

REPORT INFORMATION
  Report Type: Report from Study
  Country: EG (occurrence: EG)
  Receive Date: 20230317
  Receipt Date: 20230317
  Transmission Date: 20230418
  Serious: Yes (Life-Threatening)
  Sender: FDA-Public Use
  Company Number: EG-002147023-NVSC2023EG062559

PATIENT
  Sex: Male

DRUGS (1)
  1. MAYZENT [Suspect]
     Active Substance: SIPONIMOD
     Indication: Multiple sclerosis
     Dosage: 0.25 MG (TITRATION DOSE AS RECOMMENDED; 0.25MG ONCE DAILY ON DAY 1 AND DAY 2, FOLLOWED BY TWO TABLET
     Route: 048
     Dates: start: 20230310

REACTIONS (4)
  - Feeling abnormal [Unknown]
  - Somnolence [Unknown]
  - Fatigue [Unknown]
  - Movement disorder [Unknown]
